FAERS Safety Report 20610641 (Version 1)
Quarter: 2022Q1

REPORT INFORMATION
  Report Type: Spontaneous
  Country: US (occurrence: US)
  Receive Date: 20220318
  Receipt Date: 20220318
  Transmission Date: 20220423
  Serious: No
  Sender: FDA-Public Use
  Company Number: US-TEVA-2022-US-2010743

PATIENT
  Sex: Female

DRUGS (2)
  1. ANASTROZOLE [Suspect]
     Active Substance: ANASTROZOLE
     Indication: Breast cancer
     Route: 065
     Dates: start: 201809
  2. ANASTROZOLE [Suspect]
     Active Substance: ANASTROZOLE
     Route: 065

REACTIONS (4)
  - Alopecia [Not Recovered/Not Resolved]
  - Drug hypersensitivity [Unknown]
  - Pruritus [Unknown]
  - Product packaging quantity issue [Unknown]
